FAERS Safety Report 14630668 (Version 1)
Quarter: 2018Q1

REPORT INFORMATION
  Report Type: Spontaneous
  Country: US (occurrence: US)
  Receive Date: 20180313
  Receipt Date: 20180313
  Transmission Date: 20180509
  Serious: No
  Sender: FDA-Public Use
  Company Number: US-BIOGEN-2018BI00523570

PATIENT
  Sex: Female

DRUGS (1)
  1. ZINBRYTA [Suspect]
     Active Substance: DACLIZUMAB
     Indication: MULTIPLE SCLEROSIS
     Route: 058
     Dates: start: 20171122

REACTIONS (4)
  - Ocular discomfort [Not Recovered/Not Resolved]
  - Eye disorder [Unknown]
  - Vision blurred [Not Recovered/Not Resolved]
  - Headache [Unknown]
